FAERS Safety Report 5114964-4 (Version None)
Quarter: 2006Q3

REPORT INFORMATION
  Report Type: 
  Country: None (occurrence: None)
  Receive Date: 20060921
  Receipt Date: 20060911
  Transmission Date: 20061208
  Serious: Yes (Hospitalization)
  Sender: FDA-Public Use
  Company Number: 229717

PATIENT
  Age: 31 Year
  Sex: 0

DRUGS (1)
  1. RITUXIMAB(RITUXIMAB) CONC FOR SOLUTION FOR INFUSION [Suspect]
     Indication: NON-HODGKIN'S LYMPHOMA
     Dosage: 375 MG, INTRAVENOUS
     Route: 042
     Dates: start: 20051124, end: 20060302

REACTIONS (2)
  - AGRANULOCYTOSIS [None]
  - NEUTROPHIL PERCENTAGE INCREASED [None]
